FAERS Safety Report 9802749 (Version 1)
Quarter: 2014Q1

REPORT INFORMATION
  Report Type: Report from Study
  Country: ZA (occurrence: ZA)
  Receive Date: 20140108
  Receipt Date: 20140108
  Transmission Date: 20141002
  Serious: Yes (Death, Hospitalization, Other)
  Sender: FDA-Public Use
  Company Number: ZA-ROCHE-1330199

PATIENT
  Sex: Female

DRUGS (5)
  1. MIRCERA [Suspect]
     Indication: NEPHROGENIC ANAEMIA
     Route: 058
     Dates: start: 201203
  2. ADALAT [Concomitant]
     Route: 065
  3. ATENOLOL [Concomitant]
     Route: 065
  4. LIPITOR [Concomitant]
     Dosage: 60 MG NOCTE
     Route: 065
  5. LASIX [Concomitant]
     Route: 065

REACTIONS (2)
  - Pulmonary oedema [Fatal]
  - Cardiac arrest [Unknown]
